FAERS Safety Report 12979717 (Version 7)
Quarter: 2017Q1

REPORT INFORMATION
  Report Type: Spontaneous
  Country: SI (occurrence: SI)
  Receive Date: 20161128
  Receipt Date: 20170324
  Transmission Date: 20170428
  Serious: Yes (Other)
  Sender: FDA-Public Use
  Company Number: SI-GLAXOSMITHKLINE-SI2016GSK170087

PATIENT
  Age: 57 Year
  Sex: Female

DRUGS (3)
  1. KARBOX [Suspect]
     Active Substance: OXCARBAZEPINE
     Indication: PRODUCT USED FOR UNKNOWN INDICATION
     Dosage: 300 MG, BID
     Route: 048
  2. RIVOTRIL [Suspect]
     Active Substance: CLONAZEPAM
     Indication: EPILEPSY
     Dosage: 0.5 MG, TID
     Route: 048
     Dates: start: 2005
  3. LAMICTAL [Suspect]
     Active Substance: LAMOTRIGINE
     Indication: EPILEPSY
     Dosage: 200 MG, BID
     Route: 048

REACTIONS (18)
  - Alopecia [Recovering/Resolving]
  - Urticaria [Unknown]
  - Rash pruritic [Unknown]
  - Skin papilloma [Unknown]
  - Somnolence [Unknown]
  - Dermatitis atopic [Unknown]
  - Constipation [Recovering/Resolving]
  - Dry eye [Unknown]
  - Muscular weakness [Recovering/Resolving]
  - Rash [Unknown]
  - Anaphylactic reaction [Unknown]
  - Dermatitis contact [Unknown]
  - Dry skin [Recovering/Resolving]
  - Blood sodium decreased [Recovering/Resolving]
  - Purulence [Unknown]
  - Pigmentation disorder [Unknown]
  - Vision blurred [Unknown]
  - Dermatitis allergic [Recovering/Resolving]
